FAERS Safety Report 6354527-6 (Version None)
Quarter: 2009Q3

REPORT INFORMATION
  Report Type: 
  Country: None (occurrence: None)
  Receive Date: 20090914
  Receipt Date: 20090909
  Transmission Date: 20100115
  Serious: Yes (Hospitalization)
  Sender: FDA-Public Use
  Company Number: AU-BRISTOL-MYERS SQUIBB COMPANY-14773451

PATIENT
  Age: 83 Year
  Sex: Male

DRUGS (1)
  1. IRBESARTAN + HCTZ TABS [Suspect]
     Indication: ESSENTIAL HYPERTENSION
     Dosage: 1 DF- 1 DOSE USPEC 1 TIME
     Route: 048
     Dates: end: 20080512

REACTIONS (2)
  - CONVULSION [None]
  - HYPONATRAEMIA [None]
